FAERS Safety Report 7432090-6 (Version None)
Quarter: 2011Q1

REPORT INFORMATION
  Report Type: 
  Country: None (occurrence: None)
  Receive Date: 20110302
  Receipt Date: 20101213
  Transmission Date: 20110831
  Serious: No
  Sender: FDA-Public Use
  Company Number: 8041506

PATIENT
  Sex: Female
  Weight: 52.1 kg

DRUGS (8)
  1. BIRTH CONTROL PILL [Concomitant]
  2. FLAGYL [Concomitant]
  3. WELCHOL [Concomitant]
  4. IRON [Concomitant]
  5. ACIPHEX [Concomitant]
  6. CERTOLIZUMAB PEGOL [Suspect]
     Indication: CROHN'S DISEASE
     Dosage: SUBCUTANEOUS
     Route: 058
     Dates: start: 20081022
  7. MERCAPTOPURINE [Concomitant]
  8. PENTASA [Concomitant]

REACTIONS (2)
  - BACK PAIN [None]
  - FLATULENCE [None]
